FAERS Safety Report 5629776-2 (Version None)
Quarter: 2008Q1

REPORT INFORMATION
  Report Type: 
  Country: None (occurrence: None)
  Receive Date: 20080214
  Receipt Date: 20080131
  Transmission Date: 20080703
  Serious: Yes (Hospitalization)
  Sender: FDA-Public Use
  Company Number: FABR-1000062

PATIENT
  Age: 58 Year
  Sex: Female

DRUGS (3)
  1. FABRAZYME         (AGALSIDASE BETA) POWDER [Suspect]
     Indication: FABRY'S DISEASE
     Dosage: 1 MG/KG, Q2W, INTRAVENOUS
     Route: 042
     Dates: start: 20031201
  2. ACETYLSALICYLIC ACID SRT [Concomitant]
  3. RISEDRONATE SODIUM [Concomitant]

REACTIONS (4)
  - DYSPHAGIA [None]
  - HYPERSENSITIVITY [None]
  - RASH GENERALISED [None]
  - RESPIRATORY DISORDER [None]
